FAERS Safety Report 4547402-0 (Version None)
Quarter: 2005Q1

REPORT INFORMATION
  Report Type: 
  Country: None (occurrence: None)
  Receive Date: 20041227
  Receipt Date: 20040930
  Transmission Date: 20050727
  Serious: No
  Sender: FDA-Public Use
  Company Number: 04P-163-0275474-00

PATIENT
  Age: 52 Year
  Sex: Male

DRUGS (12)
  1. HUMIRA [Suspect]
     Indication: RHEUMATOID ARTHRITIS
     Dosage: 40 MG, 1 IN 1 WK, SUBCUTANEOUS
     Route: 058
     Dates: start: 20030501
  2. INSULIN LISPRO [Concomitant]
  3. CLONADINE [Concomitant]
  4. COZAAR [Concomitant]
  5. LEVOTHYROXINE SODIUM [Concomitant]
  6. POTASSIUM [Concomitant]
  7. PAROXETINE HYDROCHLORIDE [Concomitant]
  8. TRAZODONE HCL [Concomitant]
  9. ALPRAZOLAM [Concomitant]
  10. CETIRIZINE HCL [Concomitant]
  11. NEURONTIN [Concomitant]
  12. OXYGEN [Concomitant]

REACTIONS (2)
  - MUSCULAR WEAKNESS [None]
  - PAIN [None]
